FAERS Safety Report 10428676 (Version 2)
Quarter: 2014Q3

REPORT INFORMATION
  Report Type: Spontaneous
  Country: IT (occurrence: None)
  Receive Date: 20140829
  Receipt Date: 20140915
  Transmission Date: 20150326
  Serious: Yes (Hospitalization)
  Sender: FDA-Public Use
  Company Number: 2502997

PATIENT
  Age: 9 Year
  Sex: Male
  Weight: 28 kg

DRUGS (7)
  1. DEXAMETHASONE. [Concomitant]
     Active Substance: DEXAMETHASONE
  2. LUXAZONE [Concomitant]
     Active Substance: DEXAMETHASONE
  3. CYTARABINE. [Suspect]
     Active Substance: CYTARABINE
     Indication: LEUKAEMIA RECURRENT
     Route: 042
     Dates: start: 20140517, end: 20140517
  4. L-ASPARAGINASE [Suspect]
     Active Substance: ASPARAGINASE
     Indication: LEUKAEMIA RECURRENT
     Dosage: 10 KIU IU (1000S) (TOTAL), INTRAMUSCULAR
     Route: 030
     Dates: start: 20140518, end: 20140518
  5. VINCRISTINE [Concomitant]
     Active Substance: VINCRISTINE
  6. ONDANSETRON [Concomitant]
     Active Substance: ONDANSETRON
  7. FLUCONAZOLE. [Concomitant]
     Active Substance: FLUCONAZOLE

REACTIONS (2)
  - Urticaria [None]
  - Bronchospasm [None]

NARRATIVE: CASE EVENT DATE: 20140518
